FAERS Safety Report 13372786 (Version 1)
Quarter: 2017Q1

REPORT INFORMATION
  Report Type: Spontaneous
  Country: US (occurrence: US)
  Receive Date: 20170324
  Receipt Date: 20170324
  Transmission Date: 20170429
  Serious: Yes (Other)
  Sender: FDA-Public Use
  Company Number: None

PATIENT
  Age: 55 Year
  Sex: Female
  Weight: 48.6 kg

DRUGS (1)
  1. TOBRAMYCIN. [Suspect]
     Active Substance: TOBRAMYCIN
     Indication: PRODUCT USED FOR UNKNOWN INDICATION
     Dosage: ?          QUANTITY:5 DROP(S);?
     Route: 047
     Dates: start: 20170308, end: 20170322

REACTIONS (7)
  - Eye swelling [None]
  - Scab [None]
  - Hypersensitivity [None]
  - Dark circles under eyes [None]
  - Erythema [None]
  - Eyelid oedema [None]
  - Lacrimation increased [None]

NARRATIVE: CASE EVENT DATE: 20170308
